FAERS Safety Report 9295233 (Version 1)
Quarter: 2013Q2

REPORT INFORMATION
  Report Type: Spontaneous
  Country: US (occurrence: US)
  Receive Date: 20130517
  Receipt Date: 20130517
  Transmission Date: 20140414
  Serious: No
  Sender: FDA-Public Use
  Company Number: US-BAYER-2013-060883

PATIENT
  Age: 51 Year
  Sex: Female
  Weight: 54.88 kg

DRUGS (4)
  1. BETASERON [Suspect]
     Dosage: 0.25 ML, QOD
     Route: 058
  2. AMLODIPINE [Concomitant]
     Dosage: 5 MG, UNK
  3. LISINOPRIL [Concomitant]
     Dosage: 30 MG, UNK
  4. VESICARE [Concomitant]
     Dosage: 5 MG, UNK

REACTIONS (5)
  - Hot flush [Unknown]
  - Night sweats [Unknown]
  - Dysgraphia [None]
  - Hypoaesthesia [None]
  - Hypoaesthesia [None]
